FAERS Safety Report 7683580-2 (Version None)
Quarter: 2011Q3

REPORT INFORMATION
  Report Type: 
  Country: None (occurrence: None)
  Receive Date: 20110815
  Receipt Date: 20110804
  Transmission Date: 20111222
  Serious: Yes (Hospitalization, Other)
  Sender: FDA-Public Use
  Company Number: GB-JNJFOC-20110804756

PATIENT
  Age: 71 Year
  Sex: Female
  Weight: 82 kg

DRUGS (13)
  1. ASPIRIN [Concomitant]
  2. CO-DYDRAMOL [Concomitant]
  3. XARELTO [Suspect]
     Indication: THROMBOSIS PROPHYLAXIS
     Route: 048
     Dates: start: 20110717, end: 20110725
  4. GLIMEPIRIDE [Concomitant]
  5. LERCANIDIPINE [Concomitant]
  6. NOVORAPID [Concomitant]
  7. RANITIDINE [Concomitant]
  8. ATORVASTATIN [Concomitant]
  9. BYETTA [Concomitant]
  10. METFORMIN HCL [Concomitant]
  11. BISOPROLOL FUMARATE [Concomitant]
  12. PERINDOPRIL [Concomitant]
  13. LEVEMIR [Concomitant]

REACTIONS (4)
  - PYREXIA [None]
  - PULMONARY EMBOLISM [None]
  - WHITE BLOOD CELL COUNT INCREASED [None]
  - DRUG INEFFECTIVE [None]
